FAERS Safety Report 10152960 (Version 1)
Quarter: 2014Q2

REPORT INFORMATION
  Report Type: Spontaneous
  Country: US (occurrence: US)
  Receive Date: 20140505
  Receipt Date: 20140505
  Transmission Date: 20141212
  Serious: Yes (Other)
  Sender: FDA-Public Use
  Company Number: US-JNJFOC-20140417255

PATIENT
  Sex: 0

DRUGS (4)
  1. RISPERIDONE [Suspect]
     Indication: PSYCHOTIC DISORDER
     Dosage: 0.92 + OR - 0.43 MG
     Route: 065
  2. RISPERIDONE [Suspect]
     Indication: DEMENTIA
     Dosage: 0.92 + OR - 0.43 MG
     Route: 065
  3. QUETIAPINE [Concomitant]
     Indication: DEMENTIA
     Dosage: 83 + OR - 46 MG
     Route: 065
  4. ZIPRASIDONE [Concomitant]
     Indication: DEMENTIA
     Dosage: 72 + OR - 36 MG
     Route: 065

REACTIONS (5)
  - Glucose tolerance impaired [Unknown]
  - Dyslipidaemia [Unknown]
  - Extrapyramidal disorder [Unknown]
  - Somnolence [Unknown]
  - Weight increased [Unknown]
